FAERS Safety Report 5695913-7 (Version None)
Quarter: 2008Q2

REPORT INFORMATION
  Report Type: 
  Country: None (occurrence: None)
  Receive Date: 20080407
  Receipt Date: 20080331
  Transmission Date: 20081010
  Serious: Yes (Life-Threatening)
  Sender: FDA-Public Use
  Company Number: JP-JNJFOC-20070603599

PATIENT
  Sex: Male
  Weight: 41 kg

DRUGS (7)
  1. RISPERDAL [Suspect]
     Indication: DRUG ADMINISTRATION ERROR
     Route: 048
  2. PROMETHAZINE [Suspect]
     Indication: DRUG ADMINISTRATION ERROR
  3. BIPERIDEN HYDROCHLORIDE TAB [Suspect]
     Indication: DRUG ADMINISTRATION ERROR
  4. MILNACIPRAN [Concomitant]
     Indication: DEPRESSION
     Route: 048
  5. MAGNESIUM OXIDE [Concomitant]
  6. SENNA [Concomitant]
     Route: 048
  7. CYSTEINE HYDROCHLORIDE [Concomitant]
     Indication: DEPRESSION
     Route: 048

REACTIONS (18)
  - ACCIDENTAL EXPOSURE [None]
  - ALTERED STATE OF CONSCIOUSNESS [None]
  - APNOEA [None]
  - DYSARTHRIA [None]
  - DYSPHAGIA [None]
  - ELECTROENCEPHALOGRAM ABNORMAL [None]
  - EXTRAPYRAMIDAL DISORDER [None]
  - GLOSSOPTOSIS [None]
  - MEDICATION ERROR [None]
  - MIOSIS [None]
  - MUSCLE RIGIDITY [None]
  - PNEUMONIA ASPIRATION [None]
  - SEDATION [None]
  - SNORING [None]
  - SOMNOLENCE [None]
  - UNRESPONSIVE TO STIMULI [None]
  - WRONG DRUG ADMINISTERED [None]
  - WRONG TECHNIQUE IN DRUG USAGE PROCESS [None]
